FAERS Safety Report 8136086-0 (Version None)
Quarter: 2012Q1

REPORT INFORMATION
  Report Type: 
  Country: None (occurrence: None)
  Receive Date: 20120214
  Receipt Date: 20120208
  Transmission Date: 20120608
  Serious: Yes (Other)
  Sender: FDA-Public Use
  Company Number: BR-ABBOTT-10P-020-0689633-00

PATIENT
  Sex: Female
  Weight: 53 kg

DRUGS (8)
  1. METHOTREXATE [Concomitant]
     Indication: RHEUMATOID ARTHRITIS
  2. FERROUS SULFATE TAB [Concomitant]
     Indication: ANAEMIA
  3. PARACETAMOL [Concomitant]
     Indication: PAIN
     Route: 048
  4. HUMIRA [Suspect]
     Indication: RHEUMATOID ARTHRITIS
     Route: 058
     Dates: end: 20101101
  5. PREDNISONE TAB [Concomitant]
     Indication: RHEUMATOID ARTHRITIS
     Dosage: 1.5 TABS PER DAY
     Route: 048
  6. FOLIC ACID [Concomitant]
     Indication: RHEUMATOID ARTHRITIS
     Route: 048
  7. OMEPRAZOLE [Concomitant]
     Indication: ABDOMINAL PAIN UPPER
     Route: 048
  8. PREDNISONE TAB [Concomitant]
     Indication: PAIN

REACTIONS (12)
  - PAIN IN EXTREMITY [None]
  - UTERINE HAEMATOMA [None]
  - DIZZINESS [None]
  - MUSCULOSKELETAL PAIN [None]
  - PREMATURE SEPARATION OF PLACENTA [None]
  - NAUSEA [None]
  - ARTHRALGIA [None]
  - ABORTION THREATENED [None]
  - HEADACHE [None]
  - HYPOTENSION [None]
  - ANAEMIA [None]
  - JOINT SWELLING [None]
